FAERS Safety Report 4348105-8 (Version None)
Quarter: 2004Q2

REPORT INFORMATION
  Report Type: 
  Country: None (occurrence: None)
  Receive Date: 20040422
  Receipt Date: 20040408
  Transmission Date: 20050107
  Serious: Yes (Death)
  Sender: FDA-Public Use
  Company Number: 2004-DE-01995GD

PATIENT
  Age: 52 Year
  Sex: Male

DRUGS (4)
  1. CYCLOPHOSPHAMIDE [Suspect]
     Indication: LYMPHOMA
     Dosage: 6 COURSES
  2. DOXORUBICIN HCL [Suspect]
     Indication: LYMPHOMA
     Dosage: 6 COURSES
  3. VINCRISTINE [Suspect]
     Indication: LYMPHOMA
     Dosage: 6 COURSES
  4. PREDNISOLONE [Suspect]
     Indication: LYMPHOMA
     Dosage: 6 COURSES

REACTIONS (2)
  - ACUTE MYELOMONOCYTIC LEUKAEMIA [None]
  - CEREBRAL HAEMORRHAGE [None]
